FAERS Safety Report 4348753-5 (Version None)
Quarter: 2004Q1

REPORT INFORMATION
  Report Type: 
  Country: None (occurrence: None)
  Receive Date: 20040325
  Receipt Date: 20031203
  Transmission Date: 20041129
  Serious: No
  Sender: FDA-Public Use
  Company Number: USA031253860

PATIENT
  Age: 75 Year
  Sex: Female

DRUGS (3)
  1. FORTEO [Suspect]
     Dates: start: 20031101
  2. REMERON [Concomitant]
  3. CALTRATE (CALCIUM CARBONATE) [Concomitant]

REACTIONS (2)
  - HEART RATE INCREASED [None]
  - PAIN IN EXTREMITY [None]
